FAERS Safety Report 5661496-0 (Version None)
Quarter: 2008Q1

REPORT INFORMATION
  Report Type: 
  Country: None (occurrence: None)
  Receive Date: 20080312
  Receipt Date: 20080306
  Transmission Date: 20080703
  Serious: Yes (Hospitalization, Other)
  Sender: FDA-Public Use
  Company Number: PHHY2008JP02282

PATIENT
  Age: 85 Year
  Sex: Female
  Weight: 46 kg

DRUGS (1)
  1. DIOVAN [Suspect]
     Indication: HYPERTENSION
     Dosage: 40 MG/DAY
     Route: 048

REACTIONS (5)
  - CARDIAC OPERATION [None]
  - ENDOTRACHEAL INTUBATION [None]
  - LOSS OF CONSCIOUSNESS [None]
  - SWELLING FACE [None]
  - SWOLLEN TONGUE [None]
